FAERS Safety Report 4686879-7 (Version None)
Quarter: 2005Q2

REPORT INFORMATION
  Report Type: 
  Country: None (occurrence: None)
  Receive Date: 20050608
  Receipt Date: 20050525
  Transmission Date: 20051028
  Serious: Yes (Other)
  Sender: FDA-Public Use
  Company Number: 2005079830

PATIENT
  Sex: Male

DRUGS (2)
  1. CELEBREX (CELECOXIBI) [Suspect]
     Indication: ILL-DEFINED DISORDER
  2. BEXTRA [Suspect]
     Indication: ILL-DEFINED DISORDER

REACTIONS (3)
  - CARDIAC DISORDER [None]
  - KNEE ARTHROPLASTY [None]
  - THERAPY NON-RESPONDER [None]
